FAERS Safety Report 4380152-2 (Version None)
Quarter: 2004Q2

REPORT INFORMATION
  Report Type: 
  Country: None (occurrence: None)
  Receive Date: 20040614
  Receipt Date: 20040406
  Transmission Date: 20050107
  Serious: No
  Sender: FDA-Public Use
  Company Number: M04-341-111

PATIENT
  Age: 66 Year
  Sex: Female
  Weight: 99 kg

DRUGS (1)
  1. VELCADE [Suspect]
     Indication: MULTIPLE MYELOMA
     Dosage: 2.6 MG: INTRAVENOUS BOLUS
     Route: 040
     Dates: start: 20040113, end: 20040402

REACTIONS (4)
  - COUGH [None]
  - HERPES ZOSTER [None]
  - PYREXIA [None]
  - WHITE BLOOD CELL COUNT DECREASED [None]
